FAERS Safety Report 6054083-6 (Version None)
Quarter: 2009Q1

REPORT INFORMATION
  Report Type: 
  Country: None (occurrence: None)
  Receive Date: 20090127
  Receipt Date: 20090115
  Transmission Date: 20090719
  Serious: Yes (Other)
  Sender: FDA-Public Use
  Company Number: GB-ROCHE-599364

PATIENT
  Sex: Female
  Weight: 54.4 kg

DRUGS (1)
  1. ISOTRETINOIN [Suspect]
     Indication: ACNE
     Route: 048
     Dates: start: 20080929, end: 20081111

REACTIONS (4)
  - CELLULITIS [None]
  - HEADACHE [None]
  - RAYNAUD'S PHENOMENON [None]
  - VISUAL ACUITY REDUCED [None]
